FAERS Safety Report 10775920 (Version 1)
Quarter: 2015Q1

REPORT INFORMATION
  Report Type: Spontaneous
  Country: US (occurrence: None)
  Receive Date: 20150205
  Receipt Date: 20150205
  Transmission Date: 20150721
  Serious: Yes (Other)
  Sender: FDA-Public Use
  Company Number: None

PATIENT
  Age: 70 Year
  Sex: Female

DRUGS (1)
  1. CHANTIX [Suspect]
     Active Substance: VARENICLINE TARTRATE
     Indication: EX-TOBACCO USER
     Dosage: 2 PILLS FIRST 3 DAYS; 1 PILL
     Route: 048
     Dates: start: 20150129, end: 20150203

REACTIONS (4)
  - Insomnia [None]
  - Mydriasis [None]
  - Vision blurred [None]
  - Eye colour change [None]

NARRATIVE: CASE EVENT DATE: 20150204
